FAERS Safety Report 9268440 (Version 1)
Quarter: 2013Q2

REPORT INFORMATION
  Report Type: Report from Study
  Country: US (occurrence: US)
  Receive Date: 20130502
  Receipt Date: 20130502
  Transmission Date: 20140414
  Serious: Yes (Hospitalization, Other)
  Sender: FDA-Public Use
  Company Number: US-ALEXION PHARMACEUTICALS INC.-A201202159

PATIENT
  Age: 18 Year
  Sex: Female

DRUGS (3)
  1. SOLIRIS [Suspect]
     Indication: PAROXYSMAL NOCTURNAL HAEMOGLOBINURIA
     Dosage: 900 MG, Q2W
     Route: 042
     Dates: start: 20120426
  2. FOLIC ACID [Concomitant]
     Dosage: 1 MG, QD
  3. FERROUS SULFATE [Concomitant]
     Dosage: 325 MG, QOD

REACTIONS (2)
  - Aplastic anaemia [Unknown]
  - Haemoglobin decreased [Unknown]
